FAERS Safety Report 22316910 (Version 1)
Quarter: 2023Q2

REPORT INFORMATION
  Report Type: Report from Study
  Country: US (occurrence: US)
  Receive Date: 20230513
  Receipt Date: 20230513
  Transmission Date: 20230721
  Serious: Yes (Other)
  Sender: FDA-Public Use
  Company Number: US-002147023-NVSC2023US106818

PATIENT
  Sex: Female

DRUGS (14)
  1. ATORVASTATIN [Suspect]
     Active Substance: ATORVASTATIN
     Indication: Pustular psoriasis
     Dosage: 10 MG
     Route: 048
  2. ATORVASTATIN [Suspect]
     Active Substance: ATORVASTATIN
     Indication: Psoriasis
  3. CETIRIZINE [Suspect]
     Active Substance: CETIRIZINE HYDROCHLORIDE
     Indication: Pustular psoriasis
     Dosage: 10 MG
     Route: 048
  4. CETIRIZINE [Suspect]
     Active Substance: CETIRIZINE HYDROCHLORIDE
     Indication: Psoriasis
  5. LISINOPRIL [Suspect]
     Active Substance: LISINOPRIL
     Indication: Pustular psoriasis
     Dosage: 10 MG
     Route: 048
  6. LISINOPRIL [Suspect]
     Active Substance: LISINOPRIL
     Indication: Psoriasis
  7. METFORMIN [Suspect]
     Active Substance: METFORMIN HYDROCHLORIDE
     Indication: Pustular psoriasis
     Dosage: 500 MG
     Route: 048
  8. METFORMIN [Suspect]
     Active Substance: METFORMIN HYDROCHLORIDE
     Indication: Psoriasis
  9. PANTOPRAZOLE [Suspect]
     Active Substance: PANTOPRAZOLE
     Indication: Pustular psoriasis
     Dosage: 40 MG
     Route: 048
  10. PANTOPRAZOLE [Suspect]
     Active Substance: PANTOPRAZOLE
     Indication: Psoriasis
  11. SERTRALINE [Suspect]
     Active Substance: SERTRALINE HYDROCHLORIDE
     Indication: Pustular psoriasis
     Dosage: 25 MG
     Route: 048
  12. SERTRALINE [Suspect]
     Active Substance: SERTRALINE HYDROCHLORIDE
     Indication: Psoriasis
  13. TRIAMCINOLONE [Suspect]
     Active Substance: TRIAMCINOLONE
     Indication: Pustular psoriasis
     Dosage: UNK
     Route: 065
  14. TRIAMCINOLONE [Suspect]
     Active Substance: TRIAMCINOLONE
     Indication: Psoriasis

REACTIONS (13)
  - Psoriatic arthropathy [Unknown]
  - Rash [Unknown]
  - Rash erythematous [Unknown]
  - Dry skin [Unknown]
  - Blood pressure increased [Unknown]
  - Lentigo [Unknown]
  - Skin irritation [Unknown]
  - Macule [Unknown]
  - Melanocytic naevus [Unknown]
  - Skin plaque [Unknown]
  - Arthralgia [Unknown]
  - Product use in unapproved indication [Unknown]
  - Drug ineffective [Unknown]
